FAERS Safety Report 14186392 (Version 3)
Quarter: 2019Q2

REPORT INFORMATION
  Report Type: Spontaneous
  Country: CA (occurrence: CA)
  Receive Date: 20171114
  Receipt Date: 20190529
  Transmission Date: 20190711
  Serious: Yes (Other)
  Sender: FDA-Public Use
  Company Number: CA-CONCORDIA PHARMACEUTICALS INC.-GSH201711-006344

PATIENT
  Age: 59 Year
  Sex: Female

DRUGS (7)
  1. HYDROXYCHLOROQUINE [Suspect]
     Active Substance: HYDROXYCHLOROQUINE
     Indication: SYSTEMIC LUPUS ERYTHEMATOSUS
     Dosage: (4.1 MG/KG)
     Route: 065
  2. ATORVASTATIN [Concomitant]
     Active Substance: ATORVASTATIN
     Indication: SYSTEMIC LUPUS ERYTHEMATOSUS
  3. AMLODIPINE [Concomitant]
     Active Substance: AMLODIPINE BESYLATE
     Indication: SYSTEMIC LUPUS ERYTHEMATOSUS
  4. MYCOPHENOLIC ACID. [Concomitant]
     Active Substance: MYCOPHENOLIC ACID
     Indication: SYSTEMIC LUPUS ERYTHEMATOSUS
  5. PREDNISONE. [Concomitant]
     Active Substance: PREDNISONE
     Indication: SYSTEMIC LUPUS ERYTHEMATOSUS
  6. METOPROLOL. [Concomitant]
     Active Substance: METOPROLOL
     Indication: SYSTEMIC LUPUS ERYTHEMATOSUS
  7. CYCLOSPORINE. [Concomitant]
     Active Substance: CYCLOSPORINE
     Indication: SYSTEMIC LUPUS ERYTHEMATOSUS

REACTIONS (7)
  - Troponin I increased [Recovering/Resolving]
  - Cardiac septal hypertrophy [Recovering/Resolving]
  - Left ventricular hypertrophy [Recovering/Resolving]
  - Brain natriuretic peptide abnormal [Recovering/Resolving]
  - Cardiomyopathy [Recovering/Resolving]
  - Left atrial dilatation [Recovering/Resolving]
  - Right atrial dilatation [Recovering/Resolving]
